FAERS Safety Report 5266885-4 (Version None)
Quarter: 2007Q1

REPORT INFORMATION
  Report Type: 
  Country: None (occurrence: None)
  Receive Date: 20070313
  Receipt Date: 20070228
  Transmission Date: 20070707
  Serious: Yes (Death)
  Sender: FDA-Public Use
  Company Number: KADN20070038

PATIENT

DRUGS (1)
  1. KADIAN [Suspect]
     Dates: end: 20060101

REACTIONS (1)
  - DEATH [None]
